FAERS Safety Report 24562554 (Version 1)
Quarter: 2024Q4

REPORT INFORMATION
  Report Type: Spontaneous
  Country: FR (occurrence: FR)
  Receive Date: 20241029
  Receipt Date: 20241029
  Transmission Date: 20250114
  Serious: Yes (Hospitalization)
  Sender: TEVA
  Company Number: None

PATIENT
  Age: 58 Year
  Sex: Female
  Weight: 56 kg

DRUGS (3)
  1. CLOZAPINE [Suspect]
     Active Substance: CLOZAPINE
     Indication: Product administration error
     Dosage: TIME INTERVAL: TOTAL
     Route: 048
     Dates: start: 20240914
  2. LAMOTRIGINE [Suspect]
     Active Substance: LAMOTRIGINE
     Indication: Product administration error
     Dosage: TIME INTERVAL: TOTAL
     Route: 048
     Dates: start: 20240914
  3. CLOBAZAM [Suspect]
     Active Substance: CLOBAZAM
     Indication: Product administration error
     Dosage: TIME INTERVAL: TOTAL
     Route: 048
     Dates: start: 20240914

REACTIONS (3)
  - Hypotension [Recovering/Resolving]
  - Torsade de pointes [Recovering/Resolving]
  - Electrocardiogram QT prolonged [Recovering/Resolving]

NARRATIVE: CASE EVENT DATE: 20240916
